FAERS Safety Report 4702951-7 (Version None)
Quarter: 2005Q2

REPORT INFORMATION
  Report Type: 
  Country: None (occurrence: None)
  Receive Date: 20050629
  Receipt Date: 20050622
  Transmission Date: 20051028
  Serious: Yes (Hospitalization)
  Sender: FDA-Public Use
  Company Number: JP-ROCHE-408447

PATIENT
  Age: 66 Year
  Sex: Female

DRUGS (1)
  1. PANALDINE [Suspect]
     Indication: TRANSIENT ISCHAEMIC ATTACK
     Route: 048

REACTIONS (3)
  - EXTRADURAL HAEMATOMA [None]
  - HYPOAESTHESIA [None]
  - MUSCULAR WEAKNESS [None]
